FAERS Safety Report 6115646-2 (Version None)
Quarter: 2009Q1

REPORT INFORMATION
  Report Type: 
  Country: None (occurrence: None)
  Receive Date: 20090313
  Receipt Date: 20090304
  Transmission Date: 20090719
  Serious: Yes (Life-Threatening)
  Sender: FDA-Public Use
  Company Number: FR-WYE-H08535009

PATIENT
  Sex: Male

DRUGS (7)
  1. CORDARONE [Suspect]
     Indication: ATRIAL FIBRILLATION
     Dosage: UNKNOWN
     Route: 065
     Dates: start: 20081017, end: 20081105
  2. ALLOPURINOL [Suspect]
     Dosage: UNKNOWN
     Route: 048
     Dates: start: 20040101, end: 20081105
  3. SYMBICORT [Concomitant]
     Indication: BRONCHOSPASM
     Dosage: UNKNOWN
     Route: 065
     Dates: start: 20081022
  4. TOLEXINE [Suspect]
     Indication: BRONCHOSPASM
     Dosage: UNKNOWN
     Route: 048
     Dates: start: 20081022, end: 20081105
  5. EUPHON [Suspect]
     Indication: BRONCHOSPASM
     Dosage: UNKNOWN
     Route: 048
     Dates: start: 20081022, end: 20081105
  6. MONO-TILDIEM [Suspect]
     Dosage: 300 MG TABLET (DOES AND REGIMEN UNSPECIFIED)
     Route: 048
     Dates: start: 20040101, end: 20081105
  7. PREVISCAN [Suspect]
     Indication: ATRIAL FIBRILLATION
     Dosage: 20 MG TABLET (DOSE AND REGIMEN UNSPECIFIED)
     Route: 048
     Dates: start: 20081017, end: 20081105

REACTIONS (1)
  - DRUG RASH WITH EOSINOPHILIA AND SYSTEMIC SYMPTOMS [None]
